FAERS Safety Report 15564652 (Version 1)
Quarter: 2018Q4

REPORT INFORMATION
  Report Type: Spontaneous
  Country: US (occurrence: US)
  Receive Date: 20181030
  Receipt Date: 20181030
  Transmission Date: 20190205
  Serious: No
  Sender: FDA-Public Use
  Company Number: US-APOTEX-2018AP019073

PATIENT
  Age: 69 Year
  Sex: Female

DRUGS (1)
  1. FLUTICASONE PROPIONATE NASAL SPRAY USP [Suspect]
     Active Substance: FLUTICASONE PROPIONATE
     Indication: HYPERSENSITIVITY
     Dosage: TWO SPRAYS IN EACH NOSTRILS NEEDED
     Route: 045
     Dates: end: 201807

REACTIONS (2)
  - Photosensitivity reaction [Not Recovered/Not Resolved]
  - Migraine [Not Recovered/Not Resolved]

NARRATIVE: CASE EVENT DATE: 201805
